FAERS Safety Report 6706933-5 (Version None)
Quarter: 2010Q2

REPORT INFORMATION
  Report Type: 
  Country: None (occurrence: None)
  Receive Date: 20100503
  Receipt Date: 20100109
  Transmission Date: 20101027
  Serious: Yes (Hospitalization)
  Sender: FDA-Public Use
  Company Number: US-PFIZER INC-2010003339

PATIENT
  Sex: Female
  Weight: 53.333 kg

DRUGS (10)
  1. SUNITINIB MALATE [Suspect]
     Indication: COLON CANCER METASTATIC
     Dosage: 37.5 MG, 1X/DAY
     Route: 048
     Dates: start: 20090105
  2. FLUOROURACIL [Suspect]
     Indication: COLON CANCER METASTATIC
     Dosage: 640 MG, EVERY 2 WEEKS
     Route: 040
     Dates: start: 20090105
  3. FLUOROURACIL [Suspect]
     Dosage: 3840 MG, EVERY 2 WEEKS
     Route: 041
     Dates: start: 20090105
  4. CALCIUM FOLINATE [Suspect]
     Indication: COLON CANCER METASTATIC
     Dosage: 640 MG, EVERY 2 WEEKS
     Route: 042
     Dates: start: 20090105
  5. OXALIPLATIN [Suspect]
     Indication: COLON CANCER METASTATIC
     Dosage: 136 MG, EVERY 2 WEEKS
     Route: 042
     Dates: start: 20090105
  6. OXYCODONE [Concomitant]
     Indication: PAIN
     Dosage: 5 MG, 2X/DAY PRN
     Dates: start: 20091008
  7. FENTANYL [Concomitant]
     Indication: PAIN
     Dosage: 50 UG, Q72HR
  8. GUAIFENESIN [Concomitant]
  9. DECADRON [Concomitant]
     Dosage: 2 MG, Q12HR
  10. COLACE [Concomitant]
     Dosage: 100 MG, 1X/DAY

REACTIONS (1)
  - ABDOMINAL INFECTION [None]
